FAERS Safety Report 25684546 (Version 2)
Quarter: 2025Q4

REPORT INFORMATION
  Report Type: Report from Study
  Country: US (occurrence: US)
  Receive Date: 20250815
  Receipt Date: 20251015
  Transmission Date: 20260118
  Serious: Yes (Hospitalization, Other)
  Sender: AMGEN
  Company Number: US-AMGEN-USASL2025153893

PATIENT
  Age: 60 Year
  Sex: Female

DRUGS (2)
  1. IMDELLTRA [Suspect]
     Active Substance: TARLATAMAB-DLLE
     Indication: Small cell lung cancer
     Dosage: UNK, CYCLE 1, DAY 1
     Route: 065
     Dates: start: 20250728
  2. IMDELLTRA [Suspect]
     Active Substance: TARLATAMAB-DLLE
     Dosage: UNK, CYCLE 1 DAY 8
     Route: 065
     Dates: start: 20250804, end: 20250818

REACTIONS (9)
  - Chest pain [Unknown]
  - Hyperhidrosis [Unknown]
  - Hypertension [Unknown]
  - Flushing [Unknown]
  - Hyponatraemia [Unknown]
  - Nausea [Unknown]
  - Pneumonia [Unknown]
  - Off label use [Unknown]
  - Therapy cessation [Unknown]

NARRATIVE: CASE EVENT DATE: 20250101
